FAERS Safety Report 8951212 (Version 16)
Quarter: 2018Q2

REPORT INFORMATION
  Report Type: Report from Study
  Country: CA (occurrence: CA)
  Receive Date: 20121207
  Receipt Date: 20180510
  Transmission Date: 20180711
  Serious: Yes (Hospitalization, Other)
  Sender: FDA-Public Use
  Company Number: PHHY2012CA041556

PATIENT
  Age: 88 Year
  Sex: Male

DRUGS (2)
  1. SANDOSTATIN [Suspect]
     Active Substance: OCTREOTIDE ACETATE
     Indication: NEUROENDOCRINE TUMOUR
     Dosage: 50 UG, ONCE/SINGLE
     Route: 058
     Dates: start: 20120112, end: 20120112
  2. SANDOSTATIN LAR DEPOT [Suspect]
     Active Substance: OCTREOTIDE ACETATE
     Indication: NEUROENDOCRINE TUMOUR
     Dosage: 30 MG, QMO (EVERY 4 WEEKS)
     Route: 030
     Dates: start: 20120126

REACTIONS (14)
  - Dental caries [Unknown]
  - Chills [Recovered/Resolved]
  - Malaise [Recovered/Resolved]
  - Injection site pain [Unknown]
  - Blood pressure increased [Unknown]
  - Body temperature decreased [Unknown]
  - Nephrolithiasis [Not Recovered/Not Resolved]
  - Hepatic lesion [Unknown]
  - Pyrexia [Recovered/Resolved]
  - Influenza [Unknown]
  - Product quality issue [Unknown]
  - Kidney infection [Recovered/Resolved]
  - Tooth injury [Unknown]
  - Blood pressure systolic increased [Unknown]

NARRATIVE: CASE EVENT DATE: 201210
